FAERS Safety Report 25498094 (Version 2)
Quarter: 2025Q3

REPORT INFORMATION
  Report Type: Report from Study
  Country: CA (occurrence: CA)
  Receive Date: 20250701
  Receipt Date: 20250711
  Transmission Date: 20251021
  Serious: Yes (Hospitalization, Other)
  Sender: TAKEDA
  Company Number: CA-TAKEDA-2021TUS058595

PATIENT
  Age: 59 Year
  Sex: Male

DRUGS (5)
  1. VEDOLIZUMAB [Suspect]
     Active Substance: VEDOLIZUMAB
     Indication: Crohn^s disease
  2. VEDOLIZUMAB [Suspect]
     Active Substance: VEDOLIZUMAB
     Dosage: 300 MILLIGRAM, Q4WEEKS
     Dates: start: 20211115
  3. VEDOLIZUMAB [Suspect]
     Active Substance: VEDOLIZUMAB
     Dosage: 300 MILLIGRAM, Q4WEEKS
  4. VEDOLIZUMAB [Suspect]
     Active Substance: VEDOLIZUMAB
     Dosage: 300 MILLIGRAM, Q4WEEKS
     Dates: start: 20231027
  5. VEDOLIZUMAB [Suspect]
     Active Substance: VEDOLIZUMAB
     Indication: Crohn^s disease
     Dosage: 108 MILLIGRAM, Q2WEEKS
     Dates: start: 20230531

REACTIONS (16)
  - Crohn^s disease [Unknown]
  - Pyoderma gangrenosum [Unknown]
  - Nephrolithiasis [Unknown]
  - Thrombocytopenia [Unknown]
  - Clostridium difficile infection [Unknown]
  - Drug level decreased [Unknown]
  - Off label use [Unknown]
  - Diarrhoea [Unknown]
  - Weight increased [Unknown]
  - Blood glucose increased [Unknown]
  - Furuncle [Unknown]
  - Skin ulcer [Unknown]
  - Hepatic steatosis [Unknown]
  - Splenomegaly [Unknown]
  - Infected skin ulcer [Unknown]
  - Alanine aminotransferase increased [Unknown]

NARRATIVE: CASE EVENT DATE: 20211115
